FAERS Safety Report 13040662 (Version 1)
Quarter: 2016Q4

REPORT INFORMATION
  Report Type: Spontaneous
  Country: US (occurrence: US)
  Receive Date: 20161219
  Receipt Date: 20161219
  Transmission Date: 20170207
  Serious: Yes (Life-Threatening, Other)
  Sender: FDA-Public Use
  Company Number: None

PATIENT
  Age: 37 Year
  Sex: Female
  Weight: 73.35 kg

DRUGS (9)
  1. NEURONTIN [Concomitant]
     Active Substance: GABAPENTIN
  2. FLAGYL [Concomitant]
     Active Substance: METRONIDAZOLE\METRONIDAZOLE HYDROCHLORIDE
  3. BUPROPION ER/SR 150 MG TAB WAT [Suspect]
     Active Substance: BUPROPION HYDROCHLORIDE
     Indication: SMOKING CESSATION THERAPY
     Dosage: ?          QUANTITY:60 TABLET(S);?
     Route: 048
     Dates: start: 20161212, end: 20161219
  4. NICOTINE. [Concomitant]
     Active Substance: NICOTINE
  5. ZYBAN [Concomitant]
     Active Substance: BUPROPION HYDROCHLORIDE
  6. ULTRAM [Concomitant]
     Active Substance: TRAMADOL HYDROCHLORIDE
  7. NATURE MADE MULTIVITAMINS WITH NO IRON [Concomitant]
  8. ROBAXIN [Concomitant]
     Active Substance: METHOCARBAMOL
  9. BUPROPION ER/SR 150 MG TAB WAT [Suspect]
     Active Substance: BUPROPION HYDROCHLORIDE
     Indication: DEPRESSION
     Dosage: ?          QUANTITY:60 TABLET(S);?
     Route: 048
     Dates: start: 20161212, end: 20161219

REACTIONS (3)
  - Heart rate increased [None]
  - Feeling jittery [None]
  - Fear [None]

NARRATIVE: CASE EVENT DATE: 20161219
